FAERS Safety Report 11423275 (Version 1)
Quarter: 2015Q3

REPORT INFORMATION
  Report Type: Spontaneous
  Country: TR (occurrence: TR)
  Receive Date: 20150827
  Receipt Date: 20150827
  Transmission Date: 20151125
  Serious: Yes (Other)
  Sender: FDA-Public Use
  Company Number: PHHY2015TR102700

PATIENT
  Age: 78 Year
  Sex: Female

DRUGS (2)
  1. ZOLEDRONATE [Suspect]
     Active Substance: ZOLEDRONIC ACID
     Indication: BREAST CANCER
     Dosage: UNK
     Route: 042
  2. ZOLEDRONATE [Suspect]
     Active Substance: ZOLEDRONIC ACID
     Indication: OVARIAN CANCER

REACTIONS (1)
  - Osteonecrosis of jaw [Unknown]
